FAERS Safety Report 9581834 (Version 1)
Quarter: 2013Q4

REPORT INFORMATION
  Report Type: Spontaneous
  Country: GB (occurrence: GB)
  Receive Date: 20131002
  Receipt Date: 20131002
  Transmission Date: 20140711
  Serious: Yes (Hospitalization, Other)
  Sender: FDA-Public Use
  Company Number: GB-WATSON-2013-17183

PATIENT
  Age: 70 Year
  Sex: Female

DRUGS (8)
  1. FLUOXETINE (UNKNOWN) [Suspect]
     Indication: DEPRESSION
     Dosage: 60 MG, DAILY; HAD BEEN INCREASED FROM 20 MG EVERY DAY ON START DATE
     Route: 048
     Dates: start: 20070830
  2. FLUOXETINE (UNKNOWN) [Suspect]
     Dosage: 20 MG, DAILY; INCREASED TO 60 MG ONCE DAILY
     Route: 048
     Dates: start: 20070813, end: 20070830
  3. DOSULEPIN [Suspect]
     Indication: DEPRESSION
     Dosage: 150 MG, DAILY; AT NIGHT
     Route: 048
  4. CLOPIDOGREL [Concomitant]
     Indication: PRODUCT USED FOR UNKNOWN INDICATION
     Dosage: 75 MG, DAILY
     Route: 065
  5. MORPHINE SULPHATE [Concomitant]
     Indication: PRODUCT USED FOR UNKNOWN INDICATION
     Dosage: 30 MG, BID
     Route: 065
  6. PREDNISOLONE [Concomitant]
     Indication: PRODUCT USED FOR UNKNOWN INDICATION
     Dosage: UNK
     Route: 065
  7. FOLIC ACID [Concomitant]
     Dosage: 5 MG, DAILY
     Route: 065
  8. ALENDRONIC ACID [Concomitant]
     Indication: PRODUCT USED FOR UNKNOWN INDICATION
     Dosage: UNK
     Route: 065

REACTIONS (2)
  - Fall [Recovering/Resolving]
  - Balance disorder [Not Recovered/Not Resolved]
